FAERS Safety Report 19625547 (Version 1)
Quarter: 2021Q3

REPORT INFORMATION
  Report Type: Report from Study
  Country: US (occurrence: US)
  Receive Date: 20210728
  Receipt Date: 20210728
  Transmission Date: 20211014
  Serious: Yes (Hospitalization, Other)
  Sender: FDA-Public Use
  Company Number: US-TAKEDA-2021TUS042321

PATIENT
  Age: 63 Year
  Sex: Female
  Weight: 59.4 kg

DRUGS (24)
  1. TEDUGLUTIDE [Suspect]
     Active Substance: TEDUGLUTIDE
     Indication: SHORT-BOWEL SYNDROME
     Dosage: 5 MILLIGRAM (0.08MG/KG), QD
     Route: 065
     Dates: start: 20140530, end: 20160916
  2. TEDUGLUTIDE [Suspect]
     Active Substance: TEDUGLUTIDE
     Dosage: 2.5 MILLIGRAM (0.04MG/KG), QD
     Route: 065
     Dates: start: 20170130, end: 201811
  3. TEDUGLUTIDE [Suspect]
     Active Substance: TEDUGLUTIDE
     Dosage: 15 MILLIGRAM (0.04MG/KG), 4/WEEK
     Route: 065
     Dates: start: 201811, end: 202101
  4. TEDUGLUTIDE [Suspect]
     Active Substance: TEDUGLUTIDE
     Dosage: 1.5 MILLIGRAM, QD
     Route: 050
     Dates: start: 20140530, end: 20210101
  5. IMITREX [Concomitant]
     Active Substance: SUMATRIPTAN SUCCINATE
     Indication: PAIN
     Dosage: 50 MILLIGRAM, NIGHTLY
     Route: 048
     Dates: start: 20200929
  6. TEDUGLUTIDE [Suspect]
     Active Substance: TEDUGLUTIDE
     Dosage: 3.8 MILLIGRAM (0.05MG/KG), QD
     Route: 065
     Dates: start: 20160916, end: 20170130
  7. RIFAXIMIN. [Concomitant]
     Active Substance: RIFAXIMIN
     Indication: CROHN^S DISEASE
     Dosage: 400 MILLIGRAM, QD
     Route: 048
     Dates: start: 20210216
  8. TEDUGLUTIDE [Suspect]
     Active Substance: TEDUGLUTIDE
     Dosage: 3.8 MILLIGRAM (0.05MG/KG), QD
     Route: 065
     Dates: start: 20160916, end: 20170130
  9. TEDUGLUTIDE [Suspect]
     Active Substance: TEDUGLUTIDE
     Dosage: 15 MILLIGRAM (0.04MG/KG), 4/WEEK
     Route: 065
     Dates: start: 201811, end: 202101
  10. TEDUGLUTIDE [Suspect]
     Active Substance: TEDUGLUTIDE
     Dosage: 1.5 MILLIGRAM, QD
     Route: 050
     Dates: start: 20140530, end: 20210101
  11. TEDUGLUTIDE [Suspect]
     Active Substance: TEDUGLUTIDE
     Dosage: 1.5 MILLIGRAM, QD
     Route: 050
     Dates: start: 20140530, end: 20210101
  12. TEDUGLUTIDE [Suspect]
     Active Substance: TEDUGLUTIDE
     Indication: SHORT-BOWEL SYNDROME
     Dosage: 5 MILLIGRAM (0.08MG/KG), QD
     Route: 065
     Dates: start: 20140530, end: 20160916
  13. TEDUGLUTIDE [Suspect]
     Active Substance: TEDUGLUTIDE
     Dosage: 15 MILLIGRAM (0.04MG/KG), 4/WEEK
     Route: 065
     Dates: start: 201811, end: 202101
  14. STELARA [Concomitant]
     Active Substance: USTEKINUMAB
     Indication: CROHN^S DISEASE
     Dosage: 90 MILLIGRAM, Q7WEEKS
     Route: 058
     Dates: start: 202012
  15. TEDUGLUTIDE [Suspect]
     Active Substance: TEDUGLUTIDE
     Indication: SHORT-BOWEL SYNDROME
     Dosage: 5 MILLIGRAM (0.08MG/KG), QD
     Route: 065
     Dates: start: 20140530, end: 20160916
  16. TEDUGLUTIDE [Suspect]
     Active Substance: TEDUGLUTIDE
     Dosage: 3.8 MILLIGRAM (0.05MG/KG), QD
     Route: 065
     Dates: start: 20160916, end: 20170130
  17. TEDUGLUTIDE [Suspect]
     Active Substance: TEDUGLUTIDE
     Indication: SHORT-BOWEL SYNDROME
     Dosage: 5 MILLIGRAM (0.08MG/KG), QD
     Route: 065
     Dates: start: 20140530, end: 20160916
  18. TEDUGLUTIDE [Suspect]
     Active Substance: TEDUGLUTIDE
     Dosage: 3.8 MILLIGRAM (0.05MG/KG), QD
     Route: 065
     Dates: start: 20160916, end: 20170130
  19. TEDUGLUTIDE [Suspect]
     Active Substance: TEDUGLUTIDE
     Dosage: 2.5 MILLIGRAM (0.04MG/KG), QD
     Route: 065
     Dates: start: 20170130, end: 201811
  20. TEDUGLUTIDE [Suspect]
     Active Substance: TEDUGLUTIDE
     Dosage: 2.5 MILLIGRAM (0.04MG/KG), QD
     Route: 065
     Dates: start: 20170130, end: 201811
  21. MECLIZINE [Concomitant]
     Active Substance: MECLIZINE HYDROCHLORIDE
     Indication: VERTIGO
     Dosage: 12.50 MILLIGRAM, TID
     Route: 048
     Dates: start: 20210322
  22. TEDUGLUTIDE [Suspect]
     Active Substance: TEDUGLUTIDE
     Dosage: 2.5 MILLIGRAM (0.04MG/KG), QD
     Route: 065
     Dates: start: 20170130, end: 201811
  23. TEDUGLUTIDE [Suspect]
     Active Substance: TEDUGLUTIDE
     Dosage: 15 MILLIGRAM (0.04MG/KG), 4/WEEK
     Route: 065
     Dates: start: 201811, end: 202101
  24. TEDUGLUTIDE [Suspect]
     Active Substance: TEDUGLUTIDE
     Dosage: 1.5 MILLIGRAM, QD
     Route: 050
     Dates: start: 20140530, end: 20210101

REACTIONS (2)
  - Anal erythema [Not Recovered/Not Resolved]
  - Bile duct stone [Recovered/Resolved]

NARRATIVE: CASE EVENT DATE: 20201119
